FAERS Safety Report 7520292-X (Version None)
Quarter: 2011Q2

REPORT INFORMATION
  Report Type: 
  Country: None (occurrence: None)
  Receive Date: 20110602
  Receipt Date: 20110526
  Transmission Date: 20111010
  Serious: Yes (Hospitalization)
  Sender: FDA-Public Use
  Company Number: US-US-EMD SERONO, INC.-7041411

PATIENT
  Sex: Female

DRUGS (1)
  1. REBIF [Suspect]
     Indication: MULTIPLE SCLEROSIS
     Route: 058
     Dates: start: 20110105

REACTIONS (5)
  - INJECTION SITE PAIN [None]
  - DIZZINESS [None]
  - PAIN IN EXTREMITY [None]
  - CONFUSIONAL STATE [None]
  - HYPOAESTHESIA [None]
